FAERS Safety Report 7618292-4 (Version None)
Quarter: 2011Q3

REPORT INFORMATION
  Report Type: 
  Country: None (occurrence: None)
  Receive Date: 20110718
  Receipt Date: 20110707
  Transmission Date: 20111222
  Serious: Yes (Death)
  Sender: FDA-Public Use
  Company Number: JP-ROCHE-777396

PATIENT
  Sex: Female
  Weight: 36 kg

DRUGS (10)
  1. CARBOPLATIN [Suspect]
     Dosage: DOSE DECREASED
     Route: 042
     Dates: start: 20110120, end: 20110120
  2. MUCOSTA [Concomitant]
     Dates: start: 20101010, end: 20110320
  3. PACLITAXEL [Suspect]
     Route: 041
     Dates: start: 20110217, end: 20110217
  4. AVASTIN [Suspect]
     Indication: LUNG ADENOCARCINOMA
     Route: 041
     Dates: start: 20101214, end: 20110217
  5. PACLITAXEL [Suspect]
     Indication: LUNG ADENOCARCINOMA
     Dosage: DOSE DECREASED.
     Route: 041
     Dates: start: 20101214, end: 20101214
  6. NAPROXEN [Concomitant]
     Route: 048
     Dates: start: 20101203, end: 20110206
  7. CARBOPLATIN [Suspect]
     Route: 042
     Dates: start: 20110217, end: 20110217
  8. OXYCONTIN [Concomitant]
     Route: 048
     Dates: start: 20100803, end: 20110320
  9. PACLITAXEL [Suspect]
     Route: 041
     Dates: start: 20110120, end: 20110120
  10. CARBOPLATIN [Suspect]
     Indication: LUNG ADENOCARCINOMA
     Dosage: DOSE DECREASED
     Route: 042
     Dates: start: 20101214, end: 20101214

REACTIONS (2)
  - TRACHEAL FISTULA [None]
  - RESPIRATORY FAILURE [None]
